FAERS Safety Report 6230257-6 (Version None)
Quarter: 2009Q2

REPORT INFORMATION
  Report Type: 
  Country: None (occurrence: None)
  Receive Date: 20090615
  Receipt Date: 20090605
  Transmission Date: 20091009
  Serious: Yes (Hospitalization, Other)
  Sender: FDA-Public Use
  Company Number: US-AMGEN-QUU350355

PATIENT
  Sex: Female

DRUGS (2)
  1. ENBREL [Suspect]
     Indication: RHEUMATOID ARTHRITIS
     Route: 058
     Dates: start: 20070319, end: 20070801
  2. PREDNISONE [Concomitant]

REACTIONS (4)
  - CATARACT [None]
  - CHEST PAIN [None]
  - RENAL IMPAIRMENT [None]
  - RHEUMATOID ARTHRITIS [None]
